FAERS Safety Report 4766031-7 (Version None)
Quarter: 2005Q3

REPORT INFORMATION
  Report Type: 
  Country: None (occurrence: None)
  Receive Date: 20050912
  Receipt Date: 20050818
  Transmission Date: 20060218
  Serious: Yes (Death, Hospitalization)
  Sender: FDA-Public Use
  Company Number: FR-GLAXOSMITHKLINE-B0391514A

PATIENT
  Age: 43 Year
  Sex: Male
  Weight: 70 kg

DRUGS (7)
  1. ZIAGEN [Suspect]
     Indication: HIV INFECTION
     Dosage: 600MG PER DAY
     Route: 048
     Dates: start: 20020203, end: 20050425
  2. NEURONTIN [Suspect]
     Indication: EPILEPSY
     Dosage: 1200MG PER DAY
     Route: 048
     Dates: start: 20040311
  3. SUSTIVA [Suspect]
     Indication: HIV INFECTION
     Dosage: 600MG PER DAY
     Route: 048
     Dates: start: 20020203, end: 20050425
  4. VIREAD [Suspect]
     Indication: HIV INFECTION
     Dosage: 245MG PER DAY
     Route: 048
     Dates: start: 20020203, end: 20050425
  5. PEGYLATED INTERFERON ALPHA 2B [Suspect]
     Indication: HEPATITIS C
     Dosage: 80MCG PER DAY
     Route: 058
     Dates: start: 20041112, end: 20050425
  6. COPEGUS [Suspect]
     Indication: HEPATITIS C
     Dosage: 1000MG PER DAY
     Route: 048
     Dates: start: 20041112, end: 20050425
  7. IMODIUM [Concomitant]
     Indication: DRUG USE FOR UNKNOWN INDICATION
     Route: 065

REACTIONS (5)
  - HAEMOLYTIC ANAEMIA [None]
  - NERVOUS SYSTEM DISORDER [None]
  - PYREXIA [None]
  - THROMBOCYTOPENIA [None]
  - THROMBOTIC THROMBOCYTOPENIC PURPURA [None]
